FAERS Safety Report 7594009-7 (Version None)
Quarter: 2011Q3

REPORT INFORMATION
  Report Type: 
  Country: None (occurrence: None)
  Receive Date: 20110706
  Receipt Date: 20110704
  Transmission Date: 20111222
  Serious: Yes (Other)
  Sender: FDA-Public Use
  Company Number: BR-PFIZER INC-2011143405

PATIENT
  Age: 31 Year
  Sex: Male

DRUGS (2)
  1. VARENICLINE TARTRATE [Suspect]
     Indication: TOBACCO USER
  2. VARENICLINE TARTRATE [Suspect]
     Indication: SMOKING CESSATION THERAPY
     Dosage: 1 TABLET DAILY
     Route: 048
     Dates: start: 20110626, end: 20110101

REACTIONS (7)
  - THROAT TIGHTNESS [None]
  - FEELING HOT [None]
  - NASAL CONGESTION [None]
  - CARDIAC DISORDER [None]
  - MALAISE [None]
  - DIZZINESS [None]
  - NAUSEA [None]
